FAERS Safety Report 22967416 (Version 3)
Quarter: 2023Q4

REPORT INFORMATION
  Report Type: Spontaneous
  Country: US (occurrence: US)
  Receive Date: 20230921
  Receipt Date: 20231106
  Transmission Date: 20240110
  Serious: Yes (Other)
  Sender: FDA-Public Use
  Company Number: US-PFIZER INC-PV202300158907

PATIENT
  Age: 82 Year
  Sex: Female
  Weight: 60.5 kg

DRUGS (3)
  1. IBRANCE [Suspect]
     Active Substance: PALBOCICLIB
     Indication: Breast cancer metastatic
     Dosage: 125 MG, CYCLIC (DAILY, 3 WKS ON 1 WK OFF)
     Route: 048
     Dates: start: 20230824
  2. IBRANCE [Suspect]
     Active Substance: PALBOCICLIB
     Dosage: UNK
  3. FASLODEX [Concomitant]
     Active Substance: FULVESTRANT
     Dosage: 500 MG
     Dates: start: 20230823

REACTIONS (2)
  - Neutropenia [Recovered/Resolved]
  - Full blood count decreased [Unknown]

NARRATIVE: CASE EVENT DATE: 20230901
